FAERS Safety Report 16701475 (Version 1)
Quarter: 2019Q3

REPORT INFORMATION
  Report Type: Spontaneous
  Country: US (occurrence: US)
  Receive Date: 20190814
  Receipt Date: 20190814
  Transmission Date: 20191004
  Serious: Yes (Hospitalization, Other)
  Sender: FDA-Public Use
  Company Number: US-PFIZER INC-2019341703

PATIENT
  Age: 92 Year
  Sex: Male
  Weight: 74.84 kg

DRUGS (3)
  1. PROPOFOL. [Concomitant]
     Active Substance: PROPOFOL
     Indication: VOMITING
     Dosage: UNK
  2. ZEMURON [Suspect]
     Active Substance: ROCURONIUM BROMIDE
     Dosage: 89 MG, UNK (TOTAL GIVEN)
     Route: 042
  3. ETOMIDATE. [Suspect]
     Active Substance: ETOMIDATE
     Dosage: 54.8 MG, UNK (TOTAL IN LESS THAN AN HOUR AND 20 MINUTES)
     Route: 042
     Dates: start: 20190210

REACTIONS (7)
  - Deafness [Not Recovered/Not Resolved]
  - Atrophy [Not Recovered/Not Resolved]
  - Overdose [Not Recovered/Not Resolved]
  - Altered state of consciousness [Not Recovered/Not Resolved]
  - Paralysis [Not Recovered/Not Resolved]
  - Unresponsive to stimuli [Not Recovered/Not Resolved]
  - Product administration error [Unknown]

NARRATIVE: CASE EVENT DATE: 20190210
